FAERS Safety Report 15645145 (Version 4)
Quarter: 2019Q1

REPORT INFORMATION
  Report Type: Spontaneous
  Country: US (occurrence: US)
  Receive Date: 20181121
  Receipt Date: 20190111
  Transmission Date: 20190417
  Serious: Yes (Death, Life-Threatening, Hospitalization, Other)
  Sender: FDA-Public Use
  Company Number: US-UNITED THERAPEUTICS-UNT-2018-019000

PATIENT
  Age: 49 Year
  Sex: Male
  Weight: 81.18 kg

DRUGS (3)
  1. REMODULIN [Suspect]
     Active Substance: TREPROSTINIL
     Indication: PULMONARY ARTERIAL HYPERTENSION
     Dosage: 0.121 ?G/KG, CONTINUING
     Route: 041
     Dates: start: 20071127, end: 20181124
  2. COUMADIN [Concomitant]
     Active Substance: WARFARIN SODIUM
     Indication: PRODUCT USED FOR UNKNOWN INDICATION
     Route: 065
  3. ADCIRCA [Concomitant]
     Active Substance: TADALAFIL
     Indication: PULMONARY ARTERIAL HYPERTENSION
     Route: 065

REACTIONS (12)
  - Clostridium test positive [Unknown]
  - Asthenia [Unknown]
  - Cardiac arrest [Fatal]
  - Infection [Unknown]
  - Acute respiratory failure [Fatal]
  - Tachycardia [Unknown]
  - Melaena [Unknown]
  - Pulmonary oedema [Fatal]
  - Gastrointestinal haemorrhage [Unknown]
  - Haematochezia [Fatal]
  - Anticoagulation drug level above therapeutic [Unknown]
  - Aspiration [Unknown]

NARRATIVE: CASE EVENT DATE: 201811
